FAERS Safety Report 7494549-5 (Version None)
Quarter: 2011Q2

REPORT INFORMATION
  Report Type: 
  Country: None (occurrence: None)
  Receive Date: 20110520
  Receipt Date: 20110512
  Transmission Date: 20111010
  Serious: Yes (Hospitalization)
  Sender: FDA-Public Use
  Company Number: PHHY2011US26365

PATIENT
  Sex: Male

DRUGS (10)
  1. NEURONTIN [Concomitant]
     Dosage: 600 MG, TID
     Route: 048
  2. METHADOSE [Concomitant]
     Dosage: 20 MG, TID
  3. FOLIC ACID [Concomitant]
     Dosage: 2 MG, DAILY
  4. LEVAQUIN [Concomitant]
     Dosage: 750 MG, UNK
  5. NORVASC [Concomitant]
     Dosage: 10 MG, DAILY
     Route: 048
  6. EXJADE [Suspect]
     Indication: IRON OVERLOAD
     Dosage: 2500 MG, DAILY
     Route: 048
  7. K-DUR [Concomitant]
     Dosage: 20 MEQ, DAILY
     Route: 048
  8. ASPIRIN [Concomitant]
     Dosage: 81 MG, DAILY
     Route: 048
  9. DILAUDID [Concomitant]
     Dosage: 8 MG, UNK
  10. OXYCONTIN [Concomitant]
     Dosage: 80 MG, TID
     Route: 048

REACTIONS (10)
  - CHEST PAIN [None]
  - PAIN IN EXTREMITY [None]
  - PAIN [None]
  - THROMBOCYTOSIS [None]
  - SKIN ULCER [None]
  - SICKLE CELL ANAEMIA WITH CRISIS [None]
  - ERYTHEMA [None]
  - LEUKOCYTOSIS [None]
  - STAPHYLOCOCCAL INFECTION [None]
  - ARTHRALGIA [None]
